FAERS Safety Report 19885020 (Version 1)
Quarter: 2021Q3

REPORT INFORMATION
  Report Type: Spontaneous
  Country: US (occurrence: US)
  Receive Date: 20210927
  Receipt Date: 20210927
  Transmission Date: 20211014
  Serious: Yes (Death)
  Sender: FDA-Public Use
  Company Number: None

PATIENT
  Age: 75 Year
  Sex: Male
  Weight: 112.5 kg

DRUGS (10)
  1. MULTIVITAMIN [Concomitant]
     Active Substance: VITAMINS
  2. TYLENOL [Concomitant]
     Active Substance: ACETAMINOPHEN
  3. CLONIDINE. [Concomitant]
     Active Substance: CLONIDINE
  4. FLUTICASONE. [Concomitant]
     Active Substance: FLUTICASONE
  5. PRHOCHLORPERAZINE [Concomitant]
  6. DILTIAZEM. [Concomitant]
     Active Substance: DILTIAZEM
  7. LORATADINE. [Concomitant]
     Active Substance: LORATADINE
  8. ONDANSETRON [Concomitant]
     Active Substance: ONDANSETRON
  9. CAPECITABINE. [Suspect]
     Active Substance: CAPECITABINE
     Indication: PANCREATIC CARCINOMA
     Dosage: ?          OTHER FREQUENCY:BID W/ RT;?
     Route: 048
     Dates: start: 20210823
  10. LOSARTAN AND HYDROCHLOROTHIAZIDE [Concomitant]
     Active Substance: HYDROCHLOROTHIAZIDE\LOSARTAN POTASSIUM

REACTIONS (1)
  - Death [None]

NARRATIVE: CASE EVENT DATE: 20210924
